FAERS Safety Report 25595132 (Version 1)
Quarter: 2025Q3

REPORT INFORMATION
  Report Type: Spontaneous
  Country: US (occurrence: US)
  Receive Date: 20250723
  Receipt Date: 20250723
  Transmission Date: 20251020
  Serious: Yes (Hospitalization)
  Sender: PARI RESPIRATORY EQUIPMENT
  Company Number: US-PARI RESPIRATORY EQUIPMENT, INC.-2025PAR00055

PATIENT
  Sex: Female
  Weight: 56.236 kg

DRUGS (1)
  1. KITABIS PAK [Suspect]
     Active Substance: TOBRAMYCIN
     Indication: Bacterial disease carrier
     Dosage: 300 MG (5 ML) EVERY 12 HOURS FOR 28 DAYS ON AND 28 DAYS OFF THEN REPEAT

REACTIONS (1)
  - Infection [Unknown]
